FAERS Safety Report 6341739-0 (Version None)
Quarter: 2009Q3

REPORT INFORMATION
  Report Type: 
  Country: None (occurrence: None)
  Receive Date: 20090904
  Receipt Date: 20090824
  Transmission Date: 20100115
  Serious: Yes (Hospitalization)
  Sender: FDA-Public Use
  Company Number: FR-PFIZER INC-2009258451

PATIENT
  Age: 69 Year

DRUGS (8)
  1. DOXORUBICIN HCL [Suspect]
     Indication: HODGKIN'S DISEASE LYMPHOCYTE PREDOMINANCE TYPE STAGE IV
     Dosage: 25 MG/M2, UNK
     Route: 042
     Dates: start: 20081020, end: 20090213
  2. BLEOMYCIN [Suspect]
     Indication: HODGKIN'S DISEASE LYMPHOCYTE PREDOMINANCE TYPE STAGE IV
     Dosage: 10 MG/M2, UNK
     Route: 042
     Dates: start: 20081020, end: 20090213
  3. VINBLASTINE ^ROGER BELLON^ [Suspect]
     Indication: HODGKIN'S DISEASE LYMPHOCYTE PREDOMINANCE TYPE STAGE IV
     Dosage: 6 MG/M2, UNK
     Route: 042
     Dates: start: 20081020, end: 20090213
  4. DACARBAZINE [Suspect]
     Indication: HODGKIN'S DISEASE LYMPHOCYTE PREDOMINANCE TYPE STAGE IV
     Dosage: 375 MG/M2, UNK
     Route: 042
     Dates: start: 20081020, end: 20090213
  5. COVERSYL [Suspect]
     Dosage: UNK
     Route: 048
     Dates: end: 20090318
  6. ATENOLOL [Concomitant]
     Dosage: UNK
  7. PLAVIX [Concomitant]
     Dosage: 1 DF, 1X/DAY
  8. CARDIOXANE [Concomitant]
     Dosage: 500 MG/M2, UNK

REACTIONS (1)
  - LUNG DISORDER [None]
